FAERS Safety Report 6226893-3 (Version None)
Quarter: 2009Q2

REPORT INFORMATION
  Report Type: 
  Country: None (occurrence: None)
  Receive Date: 20090612
  Receipt Date: 20090605
  Transmission Date: 20091009
  Serious: Yes (Other)
  Sender: FDA-Public Use
  Company Number: FR-ASTRAZENECA-2009CG00575

PATIENT
  Age: 26961 Day
  Sex: Female
  Weight: 73 kg

DRUGS (3)
  1. ARIMIDEX [Suspect]
     Indication: BREAST CANCER FEMALE
     Route: 048
  2. RADIOTHERAPY [Suspect]
     Indication: BREAST CANCER FEMALE
     Dates: start: 20090209, end: 20090323
  3. COTAREG [Concomitant]
     Indication: HYPERTENSION

REACTIONS (1)
  - DERMATITIS BULLOUS [None]
